FAERS Safety Report 7003655-0 (Version None)
Quarter: 2010Q3

REPORT INFORMATION
  Report Type: 
  Country: None (occurrence: None)
  Receive Date: 20100920
  Receipt Date: 20091217
  Transmission Date: 20110219
  Serious: No
  Sender: FDA-Public Use
  Company Number: US-WYE-H10094509

PATIENT
  Sex: Female
  Weight: 90.8 kg

DRUGS (5)
  1. PRISTIQ [Suspect]
     Indication: ANXIETY
     Route: 048
     Dates: start: 20080902, end: 20090602
  2. PRISTIQ [Suspect]
     Indication: DEPRESSION
  3. WELLBUTRIN [Concomitant]
  4. ZEBETA [Concomitant]
  5. ASTELIN [Concomitant]

REACTIONS (4)
  - DRY MOUTH [None]
  - PAROTID GLAND ENLARGEMENT [None]
  - SALIVARY GLAND CALCULUS [None]
  - SALIVARY GLAND PAIN [None]
